FAERS Safety Report 8078467-X (Version None)
Quarter: 2012Q1

REPORT INFORMATION
  Report Type: 
  Country: None (occurrence: None)
  Receive Date: 20120127
  Receipt Date: 20110314
  Transmission Date: 20120608
  Serious: No
  Sender: FDA-Public Use
  Company Number: PR-ABBOTT-11P-131-0707079-00

PATIENT
  Sex: Female
  Weight: 95.34 kg

DRUGS (17)
  1. LISINOPRIL [Concomitant]
     Dosage: 20 MG
     Route: 048
  2. XANAX [Concomitant]
     Indication: DEPRESSION
     Dosage: 0.5 MG
     Route: 048
  3. ZOLOFT [Concomitant]
     Indication: DEPRESSION
     Dosage: 150 MG
     Route: 048
  4. MEDROL [Concomitant]
     Indication: RHEUMATOID ARTHRITIS
     Dosage: 4 MG
     Route: 048
  5. MELOXICAM [Concomitant]
     Dosage: 7.5 MG
     Route: 048
  6. HUMIRA [Suspect]
     Indication: RHEUMATOID ARTHRITIS
     Route: 058
  7. SALSALATE [Concomitant]
     Indication: RHEUMATOID ARTHRITIS
     Dosage: 750 MG
     Route: 048
  8. VITAMIN D [Concomitant]
     Indication: OSTEOARTHRITIS
     Dosage: 50,000 UNITS
     Route: 048
  9. RESTORIL [Concomitant]
     Indication: DEPRESSION
     Dosage: 30 MG
     Route: 048
  10. ORENCIA [Suspect]
     Indication: PRODUCT USED FOR UNKNOWN INDICATION
  11. JANUMET [Concomitant]
     Indication: DIABETES MELLITUS
     Dosage: 50/1000 MG
     Route: 048
  12. SYNTHROID [Concomitant]
     Indication: RED BLOOD CELL SEDIMENTATION RATE INCREASED
     Dosage: 25 MCG
     Route: 048
  13. ABILIFY [Concomitant]
     Dosage: 2 MG
     Route: 048
  14. NEURONTIN [Concomitant]
     Indication: PAIN
     Dosage: 300 MG
     Route: 048
  15. MELLARIL [Concomitant]
     Indication: DEPRESSION
     Dosage: 2 MG
     Route: 048
  16. ZOCOR [Concomitant]
     Indication: HYPERCHOLESTEROLAEMIA
     Dosage: 40 MG
     Route: 048
  17. INTEGRA [Concomitant]
     Indication: PERNICIOUS ANAEMIA
     Route: 048

REACTIONS (4)
  - DRUG INEFFECTIVE [None]
  - ARTHRALGIA [None]
  - CONDITION AGGRAVATED [None]
  - RED BLOOD CELL SEDIMENTATION RATE INCREASED [None]
